FAERS Safety Report 8053483-2 (Version None)
Quarter: 2012Q1

REPORT INFORMATION
  Report Type: 
  Country: None (occurrence: None)
  Receive Date: 20120118
  Receipt Date: 20120112
  Transmission Date: 20120608
  Serious: Yes (Other)
  Sender: FDA-Public Use
  Company Number: CO-PFIZER INC-2012010814

PATIENT
  Age: 40 Year
  Sex: Female

DRUGS (1)
  1. DOSTINEX [Suspect]
     Indication: PITUITARY TUMOUR BENIGN
     Dosage: 0.5 MG, 2X/WEEK
     Route: 048
     Dates: start: 20000101

REACTIONS (3)
  - CRANIOPHARYNGIOMA [None]
  - PROLACTINOMA [None]
  - BLOOD PROLACTIN INCREASED [None]
